FAERS Safety Report 22068559 (Version 2)
Quarter: 2023Q1

REPORT INFORMATION
  Report Type: Report from Study
  Country: AR (occurrence: AR)
  Receive Date: 20230307
  Receipt Date: 20230309
  Transmission Date: 20230417
  Serious: Yes (Other)
  Sender: FDA-Public Use
  Company Number: AR-002147023-NVSC2023AR049373

PATIENT
  Age: 37 Year
  Sex: Female

DRUGS (1)
  1. KESIMPTA [Suspect]
     Active Substance: OFATUMUMAB
     Indication: Multiple sclerosis
     Dosage: 20 MG, QMO, (ON THE SKIN)
     Route: 058
     Dates: start: 20230110

REACTIONS (3)
  - Immunodeficiency [Unknown]
  - Arthropod bite [Unknown]
  - Localised infection [Unknown]

NARRATIVE: CASE EVENT DATE: 20230220
